FAERS Safety Report 12706478 (Version 12)
Quarter: 2017Q2

REPORT INFORMATION
  Report Type: Spontaneous
  Country: US (occurrence: US)
  Receive Date: 20160901
  Receipt Date: 20170605
  Transmission Date: 20170830
  Serious: Yes (Other)
  Sender: FDA-Public Use
  Company Number: US-PFIZER INC-2016408191

PATIENT
  Age: 73 Year
  Sex: Female
  Weight: 76.19 kg

DRUGS (8)
  1. IBRANCE [Suspect]
     Active Substance: PALBOCICLIB
     Dosage: 75 MG, CYCLIC (D1-21 Q28DAYS)
     Route: 048
     Dates: end: 201705
  2. IBRANCE [Suspect]
     Active Substance: PALBOCICLIB
     Dosage: 100 MG, CYCLIC (DAY 1-21 Q 28 DAYS)
     Route: 048
     Dates: start: 20160531
  3. IBRANCE [Suspect]
     Active Substance: PALBOCICLIB
     Indication: COLON CANCER
     Dosage: 100 MG, CYCLIC (DAY 1-21 Q 28 DAYS)
     Route: 048
     Dates: start: 20160531
  4. IBRANCE [Suspect]
     Active Substance: PALBOCICLIB
     Dosage: 100 MG, CYCLIC  (DAY 1-21 EVERY 28 DAYS)
     Route: 048
     Dates: start: 20160824
  5. IBRANCE [Suspect]
     Active Substance: PALBOCICLIB
     Dosage: 100 MG, CYCLIC (EVERY OTHER DAY FOR REMAINING PILLS, FOLLOWED BY A WEEK OFF)
  6. IBRANCE [Suspect]
     Active Substance: PALBOCICLIB
     Indication: BREAST CANCER METASTATIC
     Dosage: 100 MG, CYCLIC (DAY 1-21 EVERY 28 DAYS)
     Route: 048
     Dates: start: 20160531
  7. IBRANCE [Suspect]
     Active Substance: PALBOCICLIB
     Dosage: 100 MG, CYCLIC  (DAY 1-21 EVERY 28 DAYS)
     Route: 048
     Dates: start: 20160824
  8. IBRANCE [Suspect]
     Active Substance: PALBOCICLIB
     Dosage: 100 MG, CYCLIC (DAY 1-21 EVERY 28 DAYS)
     Route: 048
     Dates: start: 20160824

REACTIONS (16)
  - Kidney infection [Unknown]
  - Sinus disorder [Unknown]
  - Asthenia [Unknown]
  - Condition aggravated [Unknown]
  - Dysphonia [Unknown]
  - Nausea [Recovered/Resolved]
  - Back pain [Unknown]
  - Muscular weakness [Unknown]
  - Dizziness [Recovered/Resolved]
  - Hypersensitivity [Unknown]
  - Full blood count decreased [Unknown]
  - Urinary tract infection [Unknown]
  - Pleural effusion [Unknown]
  - Vulva cyst [Unknown]
  - Influenza [Unknown]
  - Cystitis [Unknown]

NARRATIVE: CASE EVENT DATE: 20160824
